FAERS Safety Report 4879536-5 (Version None)
Quarter: 2006Q1

REPORT INFORMATION
  Report Type: 
  Country: None (occurrence: None)
  Receive Date: 20060111
  Receipt Date: 20051229
  Transmission Date: 20060701
  Serious: Yes (Hospitalization, Other)
  Sender: FDA-Public Use
  Company Number: HQWYE162803JAN06

PATIENT
  Age: 35 Year
  Sex: Female

DRUGS (8)
  1. PANTOPRAZOLE SODIUM [Suspect]
     Indication: BACK PAIN
     Dosage: 400 MG 1X PER 1 DAY; ORAL
     Route: 048
     Dates: start: 20050615, end: 20051203
  2. PANTOPRAZOLE SODIUM [Suspect]
     Indication: SCIATICA
     Dosage: 400 MG 1X PER 1 DAY; ORAL
     Route: 048
     Dates: start: 20050615, end: 20051203
  3. PREDNISOLONE [Suspect]
     Indication: BACK PAIN
     Dosage: ^DF^; ORAL
     Route: 048
     Dates: start: 20050615, end: 20051203
  4. PREDNISOLONE [Suspect]
     Indication: SCIATICA
     Dosage: ^DF^; ORAL
     Route: 048
     Dates: start: 20050615, end: 20051203
  5. TAHOR (ATORVASTATIN , ) [Suspect]
     Dosage: ^DF^' ORAL
     Route: 048
     Dates: start: 20000101, end: 20050601
  6. TAHOR (ATORVASTATIN, ) [Suspect]
     Dosage: 20 MG 1X PER 1 DAY; ORAL
     Route: 048
     Dates: start: 20051101, end: 20051203
  7. TOPALGIC (TRAMADOL HYDROCHLORIDE) [Concomitant]
  8. ISKEDYL (DIHYDROERGOCRISTINE MESILATE/RAUBASINE) [Suspect]
     Dosage: ^DF^
     Route: 048
     Dates: start: 20050615, end: 20051203

REACTIONS (3)
  - DRUG INTERACTION [None]
  - HEPATITIS [None]
  - RHABDOMYOLYSIS [None]
